FAERS Safety Report 6022992-X (Version None)
Quarter: 2008Q4

REPORT INFORMATION
  Report Type: 
  Country: None (occurrence: None)
  Receive Date: 20081230
  Receipt Date: 20080521
  Transmission Date: 20090506
  Serious: No
  Sender: FDA-Public Use
  Company Number: US-ABBOTT-08P-163-0452947-00

PATIENT
  Sex: Male
  Weight: 14.074 kg

DRUGS (3)
  1. OMNICEF [Suspect]
     Indication: SINUSITIS
     Route: 048
     Dates: start: 20080519
  2. TRILEPTOL [Concomitant]
     Indication: CONVULSION
     Route: 048
  3. PROBIOTIC [Concomitant]
     Indication: DRUG USE FOR UNKNOWN INDICATION
     Route: 048
     Dates: start: 20080519

REACTIONS (1)
  - FAECES DISCOLOURED [None]
